FAERS Safety Report 5566704-2 (Version None)
Quarter: 2007Q4

REPORT INFORMATION
  Report Type: 
  Country: None (occurrence: None)
  Receive Date: 20071219
  Receipt Date: 20071213
  Transmission Date: 20080405
  Serious: Yes (Life-Threatening, Hospitalization)
  Sender: FDA-Public Use
  Company Number: US-MERCK-0712USA01700

PATIENT
  Age: 41 Year
  Sex: Male
  Weight: 67 kg

DRUGS (16)
  1. ISENTRESS [Suspect]
     Indication: HIV INFECTION
     Route: 048
     Dates: start: 20071101, end: 20071121
  2. NOVATREX (AZITHROMYCIN) [Concomitant]
     Route: 065
  3. PRILOSEC [Concomitant]
     Route: 048
  4. ASPIRIN [Concomitant]
     Route: 048
  5. RETROVIR [Concomitant]
     Route: 048
  6. LAMIVUDINE [Concomitant]
     Route: 048
  7. COLACE [Concomitant]
     Route: 048
  8. KALETRA [Concomitant]
     Route: 048
  9. FUZEON [Concomitant]
     Route: 058
  10. PROCRIT [Concomitant]
     Route: 065
  11. LACTULOSE [Concomitant]
     Route: 048
  12. VANCOMYCIN [Concomitant]
     Route: 065
  13. TYLENOL [Concomitant]
     Indication: PAIN
     Route: 048
  14. SORBITOL [Concomitant]
     Route: 048
  15. COMPAZINE [Concomitant]
     Indication: ANTIEMETIC SUPPORTIVE CARE
     Route: 054
  16. INDERAL LA [Concomitant]
     Route: 048

REACTIONS (2)
  - MENTAL STATUS CHANGES [None]
  - UNRESPONSIVE TO STIMULI [None]
